FAERS Safety Report 4854168-3 (Version None)
Quarter: 2005Q4

REPORT INFORMATION
  Report Type: 
  Country: None (occurrence: None)
  Receive Date: 20051125
  Receipt Date: 20050712
  Transmission Date: 20060501
  Serious: Yes (Disabling)
  Sender: FDA-Public Use
  Company Number: US-JNJFOC-20050604083

PATIENT
  Age: 57 Year
  Sex: Male

DRUGS (4)
  1. LEVAQUIN [Suspect]
     Indication: SINUSITIS
     Dosage: 500 MG, 1 IN 1 DAY, ORAL
     Route: 048
     Dates: start: 20050301, end: 20050324
  2. ASACOL [Concomitant]
  3. CLINDAMYCIN [Concomitant]
  4. TOPROL-XL [Concomitant]

REACTIONS (9)
  - ANXIETY [None]
  - CONFUSIONAL STATE [None]
  - DRUG INEFFECTIVE [None]
  - EAR PAIN [None]
  - FATIGUE [None]
  - PARAESTHESIA [None]
  - PRURITUS [None]
  - SHOULDER PAIN [None]
  - VISION BLURRED [None]
